FAERS Safety Report 19836740 (Version 1)
Quarter: 2021Q3

REPORT INFORMATION
  Report Type: Spontaneous
  Country: US (occurrence: US)
  Receive Date: 20210916
  Receipt Date: 20210916
  Transmission Date: 20211014
  Serious: Yes (Other)
  Sender: FDA-Public Use
  Company Number: US-CIPLA LTD.-2021US06131

PATIENT

DRUGS (6)
  1. EVOTAZ [Suspect]
     Active Substance: ATAZANAVIR SULFATE\COBICISTAT
     Indication: HIV INFECTION
     Dosage: FIRST COURSE, QD
     Route: 064
     Dates: end: 20210126
  2. TEVA ABACAVIR/LAMIVUDINE [Suspect]
     Active Substance: ABACAVIR\LAMIVUDINE
     Indication: HIV INFECTION
     Dosage: FIRST COURSE, QD
     Route: 064
     Dates: start: 20201023, end: 20210126
  3. ABACAVIR/LAMIVUDINE [Suspect]
     Active Substance: ABACAVIR\LAMIVUDINE
     Indication: HIV INFECTION
     Dosage: UNK, CIPLA
     Route: 064
     Dates: start: 20210223
  4. ABACAVIR/LAMIVUDINE [Suspect]
     Active Substance: ABACAVIR\LAMIVUDINE
     Dosage: UNK (UNKNOWN MANUFACTURER)
     Route: 064
     Dates: end: 20201023
  5. ABACAVIR/LAMIVUDINE [Suspect]
     Active Substance: ABACAVIR\LAMIVUDINE
     Dosage: UNK, (UNKNOWN MANUFACTURER)
     Route: 064
     Dates: start: 20210126, end: 20210223
  6. TIVICAY [Suspect]
     Active Substance: DOLUTEGRAVIR SODIUM
     Indication: HIV INFECTION
     Dosage: 50 MILLIGRAM, QD
     Route: 064
     Dates: start: 20210126

REACTIONS (3)
  - Melanosis [Unknown]
  - Skin hyperpigmentation [Unknown]
  - Foetal exposure during pregnancy [Unknown]
